FAERS Safety Report 6284387-3 (Version None)
Quarter: 2009Q3

REPORT INFORMATION
  Report Type: 
  Country: None (occurrence: None)
  Receive Date: 20090727
  Receipt Date: 20090717
  Transmission Date: 20100115
  Serious: Yes (Other)
  Sender: FDA-Public Use
  Company Number: CH-ROCHE-636541

PATIENT
  Sex: Female

DRUGS (1)
  1. VALIUM [Suspect]
     Route: 064

REACTIONS (4)
  - AUTISM [None]
  - DRUG DEPENDENCE [None]
  - DRUG WITHDRAWAL SYNDROME NEONATAL [None]
  - REACTIVE ATTACHMENT DISORDER OF INFANCY OR EARLY CHILDHOOD [None]
